FAERS Safety Report 20158579 (Version 2)
Quarter: 2022Q1

REPORT INFORMATION
  Report Type: Spontaneous
  Country: CA (occurrence: CA)
  Receive Date: 20211207
  Receipt Date: 20220309
  Transmission Date: 20220423
  Serious: Yes (Other)
  Sender: FDA-Public Use
  Company Number: CA-SAMSUNG BIOEPIS-SB-2021-28106

PATIENT
  Age: 47 Year
  Sex: Female
  Weight: 131 kg

DRUGS (2)
  1. INFLIXIMAB [Suspect]
     Active Substance: INFLIXIMAB
     Indication: Psoriatic arthropathy
     Route: 042
  2. SULFASALAZINE [Concomitant]
     Active Substance: SULFASALAZINE
     Indication: Product used for unknown indication
     Route: 065

REACTIONS (6)
  - Arthritis infective [Recovered/Resolved]
  - Headache [Recovered/Resolved]
  - Oral infection [Recovered/Resolved]
  - Psoriasis [Recovered/Resolved]
  - Weight fluctuation [Recovered/Resolved]
  - Off label use [Recovered/Resolved]
